FAERS Safety Report 6657469-1 (Version None)
Quarter: 2010Q1

REPORT INFORMATION
  Report Type: 
  Country: None (occurrence: None)
  Receive Date: 20100330
  Receipt Date: 20100319
  Transmission Date: 20100710
  Serious: Yes (Other)
  Sender: FDA-Public Use
  Company Number: PHHY2009BR56594

PATIENT
  Age: 14 Year
  Sex: Female

DRUGS (2)
  1. TEGRETOL [Suspect]
     Dosage: 50 DF, ONCE/SINGLE
     Route: 048
  2. ALCOHOL [Suspect]

REACTIONS (3)
  - INTENTIONAL DRUG MISUSE [None]
  - RESPIRATORY DEPRESSION [None]
  - SUICIDE ATTEMPT [None]
